FAERS Safety Report 9410035 (Version 4)
Quarter: 2014Q2

REPORT INFORMATION
  Report Type: Spontaneous
  Country: US (occurrence: US)
  Receive Date: 20130719
  Receipt Date: 20140508
  Transmission Date: 20141212
  Serious: Yes (Other)
  Sender: FDA-Public Use
  Company Number: US-PFIZER INC-2013211622

PATIENT
  Age: 62 Year
  Sex: Female

DRUGS (16)
  1. LIPITOR [Suspect]
     Indication: LOW DENSITY LIPOPROTEIN INCREASED
     Dosage: UNK
     Route: 048
     Dates: start: 20010604, end: 201111
  2. LIPITOR [Suspect]
     Indication: CARDIOVASCULAR EVENT PROPHYLAXIS
     Dosage: 80 MG, 1X/DAY
     Route: 048
     Dates: start: 20040907
  3. LIPITOR [Suspect]
     Dosage: 40 MG, UNK
     Route: 048
     Dates: start: 20041004
  4. LIPITOR [Suspect]
     Dosage: 40 MG, UNK
     Route: 048
     Dates: start: 20050210
  5. LIPITOR [Suspect]
     Dosage: 60 MG, HALF TABLET
     Route: 048
     Dates: start: 20050418
  6. LIPITOR [Suspect]
     Dosage: 60 MG, 1X/DAY
     Route: 048
     Dates: start: 20050609
  7. ZETIA [Concomitant]
     Dosage: 10 MG, 1X/DAY
     Dates: start: 20050131
  8. POTASSIUM CHLORIDE [Concomitant]
     Dosage: 20 MG, UNK
     Dates: start: 20050131
  9. TOPROL XL [Concomitant]
     Dosage: 50 MG, 1X/DAY
     Dates: start: 20050131
  10. LASIX [Concomitant]
     Dosage: 40 MG, UNK
     Dates: start: 20050131
  11. PRINIVIL [Concomitant]
     Dosage: 20 MG, UNK
     Dates: start: 20050131
  12. ZOLOFT [Concomitant]
     Dosage: 100 MG, UNK
     Dates: start: 20050131
  13. ZESTRIL [Concomitant]
     Dosage: UNK
     Dates: start: 20050131
  14. LEVAQUIN [Concomitant]
     Dosage: 500 MG, UNK
     Dates: start: 20050210
  15. NASONEX [Concomitant]
     Dosage: UNK
     Dates: start: 20050210
  16. ZYRTEC [Concomitant]
     Dosage: 10 MG, UNK
     Dates: start: 20050210

REACTIONS (1)
  - Type 2 diabetes mellitus [Unknown]
